FAERS Safety Report 13483506 (Version 5)
Quarter: 2020Q1

REPORT INFORMATION
  Report Type: Spontaneous
  Country: FR (occurrence: FR)
  Receive Date: 20170424
  Receipt Date: 20200113
  Transmission Date: 20200409
  Serious: Yes (Death, Hospitalization, Other)
  Sender: FDA-Public Use
  Company Number: PHHY2017FR060439

PATIENT
  Age: 65 Year
  Sex: Male
  Weight: 74 kg

DRUGS (19)
  1. SORIATANE [Suspect]
     Active Substance: ACITRETIN
     Dosage: 15 MG
     Route: 048
     Dates: start: 201312, end: 20140212
  2. SORIATANE [Suspect]
     Active Substance: ACITRETIN
     Dosage: 25 MG, QD
     Route: 048
     Dates: start: 20140212, end: 20140312
  3. SORIATANE [Suspect]
     Active Substance: ACITRETIN
     Indication: PSORIASIS
     Dosage: 10 MG, QD
     Route: 048
     Dates: start: 20131008, end: 201501
  4. METHOTREXATE. [Suspect]
     Active Substance: METHOTREXATE
     Dosage: 15 MG, ONCE WEEKLY
     Route: 048
     Dates: start: 20140312, end: 20150721
  5. CARBOPLATIN. [Concomitant]
     Active Substance: CARBOPLATIN
     Indication: PRODUCT USED FOR UNKNOWN INDICATION
     Route: 042
  6. FOLIC ACID. [Concomitant]
     Active Substance: FOLIC ACID
     Indication: PSORIASIS
     Dosage: 1 OT, QW
     Route: 048
     Dates: start: 20140312, end: 20150721
  7. METHOTREXATE. [Suspect]
     Active Substance: METHOTREXATE
     Indication: PSORIASIS
     Dosage: 20 MG, QW
     Route: 065
     Dates: start: 2007, end: 20131008
  8. SORIATANE [Suspect]
     Active Substance: ACITRETIN
     Dosage: 10 MG, UNK
     Route: 048
     Dates: start: 20140312, end: 20150721
  9. SORIATANE [Suspect]
     Active Substance: ACITRETIN
     Dosage: 10 MG
     Route: 048
     Dates: start: 20131008, end: 201312
  10. VP-16 [Concomitant]
     Active Substance: ETOPOSIDE
     Indication: PRODUCT USED FOR UNKNOWN INDICATION
     Dosage: UNK
     Route: 065
  11. SPECIAFOLDINE [Concomitant]
     Active Substance: FOLIC ACID
     Indication: PRODUCT USED FOR UNKNOWN INDICATION
     Dosage: 10 MG, ONCE WEEKLY
     Route: 048
     Dates: start: 2013, end: 201506
  12. FLUTICASONE. [Concomitant]
     Active Substance: FLUTICASONE
     Indication: PRODUCT USED FOR UNKNOWN INDICATION
     Dosage: UNK
     Route: 065
  13. ENBREL [Suspect]
     Active Substance: ETANERCEPT
     Dosage: 50 MG, QW
     Route: 058
     Dates: start: 201601, end: 20160426
  14. VP-16 [Concomitant]
     Active Substance: ETOPOSIDE
     Dosage: UNK
     Route: 065
  15. DUROGESIC [Concomitant]
     Active Substance: FENTANYL
     Indication: PRODUCT USED FOR UNKNOWN INDICATION
     Dosage: 75 OT, EVERY 72 HOURS
     Route: 065
  16. CLOBETASOL PROPIONATE. [Concomitant]
     Active Substance: CLOBETASOL PROPIONATE
     Indication: PRODUCT USED FOR UNKNOWN INDICATION
     Dosage: UNK
     Route: 065
  17. CYCLOSPORINE. [Suspect]
     Active Substance: CYCLOSPORINE
     Indication: PSORIASIS
     Route: 048
  18. ENBREL [Suspect]
     Active Substance: ETANERCEPT
     Indication: PSORIASIS
     Dosage: 50 MG, 2X/WEEK
     Route: 058
     Dates: start: 20150721, end: 201601
  19. ENBREL [Suspect]
     Active Substance: ETANERCEPT
     Dosage: 25 MG, ONCE WEEKLY
     Route: 058
     Dates: start: 20160426

REACTIONS (5)
  - Neuroendocrine tumour of the lung metastatic [Fatal]
  - Metastases to liver [Fatal]
  - Basal cell carcinoma [Recovered/Resolved]
  - General physical health deterioration [Fatal]
  - Drug ineffective [Recovering/Resolving]

NARRATIVE: CASE EVENT DATE: 20141126
